FAERS Safety Report 13023785 (Version 1)
Quarter: 2016Q4

REPORT INFORMATION
  Report Type: Spontaneous
  Country: ES (occurrence: ES)
  Receive Date: 20161213
  Receipt Date: 20161213
  Transmission Date: 20170207
  Serious: Yes (Hospitalization, Other)
  Sender: FDA-Public Use
  Company Number: ES-MYLANLABS-2016M1053820

PATIENT

DRUGS (11)
  1. SODIUM CHLORIDE. [Suspect]
     Active Substance: SODIUM CHLORIDE
     Indication: PRODUCT USED FOR UNKNOWN INDICATION
     Route: 008
  2. BUPIVACAINE. [Suspect]
     Active Substance: BUPIVACAINE
     Dosage: 0.125% BUPIVACAINE 4 ML
     Route: 065
  3. FENTANYL. [Suspect]
     Active Substance: FENTANYL
     Dosage: 2G/ML AT 10 ML/HR
     Route: 050
  4. LIDOCAINE. [Suspect]
     Active Substance: LIDOCAINE
     Indication: EPIDURAL ANALGESIA
     Dosage: 1% LIDOCAINE PLUS BUPIVACAINE; 6 ML
     Route: 065
  5. LIDOCAINE. [Suspect]
     Active Substance: LIDOCAINE
     Dosage: 1% LIDOCAINE PLUS BUPIVACAINE; 4 ML
     Route: 065
  6. BUPIVACAINE. [Suspect]
     Active Substance: BUPIVACAINE
     Dosage: 0.4% BUPIVACAINE PLUS LIDOCAINE; 6 ML
     Route: 065
  7. BUPIVACAINE. [Suspect]
     Active Substance: BUPIVACAINE
     Dosage: 0.125% BUPIVACAINE 3 ML TWICE AT AN INTERVAL OF 5 MIN
     Route: 065
  8. LEVOBUPIVACAINE [Suspect]
     Active Substance: LEVOBUPIVACAINE
     Indication: EPIDURAL ANALGESIA
     Dosage: 0.125% LEVOBUPIVACAINE
     Route: 050
  9. BUPIVACAINE. [Suspect]
     Active Substance: BUPIVACAINE
     Indication: EPIDURAL ANALGESIA
     Dosage: 0.25% BUPIVACAINE 3 ML
     Route: 008
  10. BUPIVACAINE. [Suspect]
     Active Substance: BUPIVACAINE
     Dosage: 0.4% BUPIVACAINE PLUS LIDOCAINE; 4 ML
     Route: 065
  11. FENTANYL. [Suspect]
     Active Substance: FENTANYL
     Indication: EPIDURAL ANALGESIA
     Dosage: 75G
     Route: 040

REACTIONS (2)
  - Maternal exposure during delivery [Recovered/Resolved]
  - Horner^s syndrome [Recovered/Resolved]
